FAERS Safety Report 25766691 (Version 1)
Quarter: 2025Q3

REPORT INFORMATION
  Report Type: Report from Study
  Country: CA (occurrence: CA)
  Receive Date: 20250905
  Receipt Date: 20250905
  Transmission Date: 20251021
  Serious: Yes (Hospitalization)
  Sender: CSL BEHRING
  Company Number: CA-BEH-2025209831

PATIENT
  Age: 76 Year
  Sex: Female
  Weight: 51.1 kg

DRUGS (18)
  1. HIZENTRA [Suspect]
     Active Substance: HUMAN IMMUNOGLOBULIN G
     Indication: Secondary immunodeficiency
     Dosage: 10 G, QW
     Route: 058
     Dates: start: 20250616
  2. HIZENTRA [Suspect]
     Active Substance: HUMAN IMMUNOGLOBULIN G
     Route: 058
  3. HIZENTRA [Suspect]
     Active Substance: HUMAN IMMUNOGLOBULIN G
     Dosage: 10 G, QOW
     Route: 058
     Dates: start: 20250616
  4. HIZENTRA [Suspect]
     Active Substance: HUMAN IMMUNOGLOBULIN G
     Dosage: 10 G, QOW
     Route: 058
     Dates: start: 20250616
  5. HIZENTRA [Suspect]
     Active Substance: HUMAN IMMUNOGLOBULIN G
     Route: 065
     Dates: start: 20250630
  6. HIZENTRA [Suspect]
     Active Substance: HUMAN IMMUNOGLOBULIN G
     Route: 065
     Dates: start: 20250717
  7. HIZENTRA [Suspect]
     Active Substance: HUMAN IMMUNOGLOBULIN G
     Route: 065
     Dates: start: 20250728
  8. HIZENTRA [Suspect]
     Active Substance: HUMAN IMMUNOGLOBULIN G
     Route: 065
     Dates: start: 20250811
  9. VITAMIN D3 [Concomitant]
     Active Substance: CHOLECALCIFEROL
  10. B12 [Concomitant]
  11. VITAMIN C [Concomitant]
     Active Substance: ASCORBIC ACID
  12. VITAMINS [Concomitant]
     Active Substance: VITAMINS
  13. LETROZOLE [Concomitant]
     Active Substance: LETROZOLE
  14. BISOPROLOL [Concomitant]
     Active Substance: BISOPROLOL
  15. AMLODIPINE [Concomitant]
     Active Substance: AMLODIPINE BESYLATE
  16. RITUXIMAB [Concomitant]
     Active Substance: RITUXIMAB
  17. ACYCLOVIR [Concomitant]
     Active Substance: ACYCLOVIR
  18. SULFATRIM [Concomitant]
     Active Substance: SULFAMETHOXAZOLE\TRIMETHOPRIM

REACTIONS (25)
  - Pyrexia [Unknown]
  - Asthenia [Not Recovered/Not Resolved]
  - Decreased appetite [Not Recovered/Not Resolved]
  - Infusion site swelling [Unknown]
  - Infusion site erythema [Unknown]
  - Hospitalisation [Unknown]
  - Therapy cessation [Unknown]
  - Infusion site erythema [Unknown]
  - Infusion site swelling [Unknown]
  - Fear of injection [Unknown]
  - Nervousness [Unknown]
  - Infusion site swelling [Unknown]
  - Anxiety [Unknown]
  - Fear of injection [Unknown]
  - Infusion site erythema [Unknown]
  - Infusion site swelling [Unknown]
  - Product preparation error [Unknown]
  - Anxiety [Unknown]
  - Fear of injection [Unknown]
  - Product use issue [Unknown]
  - Infusion site erythema [Unknown]
  - Infusion site swelling [Unknown]
  - Infusion site erythema [Unknown]
  - Infusion site swelling [Recovered/Resolved]
  - Product dose omission in error [Unknown]

NARRATIVE: CASE EVENT DATE: 20250601
